FAERS Safety Report 25019921 (Version 2)
Quarter: 2025Q1

REPORT INFORMATION
  Report Type: Spontaneous
  Country: US (occurrence: US)
  Receive Date: 20250227
  Receipt Date: 20250227
  Transmission Date: 20250409
  Serious: No
  Sender: ASCEND THERAPEUTICS US, LLC
  Company Number: US-Ascend Therapeutics US, LLC-2171879

PATIENT
  Age: 56 Year
  Sex: Male

DRUGS (3)
  1. ANDROGEL [Suspect]
     Active Substance: TESTOSTERONE
     Indication: Blood testosterone decreased
  2. TESTOSTERONE [Suspect]
     Active Substance: TESTOSTERONE
  3. NP THYROID [Concomitant]
     Active Substance: LEVOTHYROXINE\LIOTHYRONINE

REACTIONS (3)
  - Blood testosterone increased [Unknown]
  - Inappropriate schedule of product administration [Unknown]
  - Thyroid disorder [Unknown]
